FAERS Safety Report 16132285 (Version 1)
Quarter: 2019Q1

REPORT INFORMATION
  Report Type: Spontaneous
  Country: US (occurrence: US)
  Receive Date: 20190226
  Receipt Date: 20190226
  Transmission Date: 20190418
  Serious: No
  Sender: FDA-Public Use
  Company Number: None

PATIENT
  Age: 73 Year
  Sex: Female
  Weight: 105.23 kg

DRUGS (1)
  1. STELARA [Suspect]
     Active Substance: USTEKINUMAB
     Indication: PSORIASIS
     Dosage: INJECT 90MG  SUBCUTANEOUSLY ON DAY  0 AND DAY 28  AS DIRECTED
     Route: 058
     Dates: start: 201803

REACTIONS (2)
  - Pneumonia [None]
  - Bronchitis [None]
